FAERS Safety Report 6234815-4 (Version None)
Quarter: 2009Q2

REPORT INFORMATION
  Report Type: 
  Country: None (occurrence: None)
  Receive Date: 20090618
  Receipt Date: 20090603
  Transmission Date: 20091009
  Serious: Yes (Hospitalization)
  Sender: FDA-Public Use
  Company Number: JP-GENENTECH-281023

PATIENT
  Sex: Female

DRUGS (11)
  1. RANIBIZUMAB [Suspect]
     Indication: MACULAR DEGENERATION
     Dosage: 0.5 MG, UNK
     Route: 031
     Dates: start: 20090402, end: 20090402
  2. DICLOFENAC [Concomitant]
     Indication: DRUG USE FOR UNKNOWN INDICATION
  3. DEPAS [Concomitant]
     Indication: DRUG USE FOR UNKNOWN INDICATION
     Dosage: UNK
     Dates: start: 20090403, end: 20090409
  4. OXYBUPROCAINE [Concomitant]
     Indication: DRUG USE FOR UNKNOWN INDICATION
  5. TARIVID [Concomitant]
     Indication: DRUG USE FOR UNKNOWN INDICATION
  6. FLUOROMETHOLONE [Concomitant]
     Indication: DRUG USE FOR UNKNOWN INDICATION
  7. XYLOCAINE [Concomitant]
     Indication: DRUG USE FOR UNKNOWN INDICATION
  8. FRANDOL [Concomitant]
     Indication: DRUG USE FOR UNKNOWN INDICATION
  9. DIGOXIN [Concomitant]
     Indication: DRUG USE FOR UNKNOWN INDICATION
  10. ACETYLSALICYLIC ACID [Concomitant]
     Indication: DRUG USE FOR UNKNOWN INDICATION
  11. DIURETICS [Concomitant]
     Indication: DRUG USE FOR UNKNOWN INDICATION

REACTIONS (4)
  - AGNOSIA [None]
  - HAEMORRHAGIC STROKE [None]
  - HEMIPARESIS [None]
  - RESTLESSNESS [None]
